FAERS Safety Report 25013354 (Version 4)
Quarter: 2025Q2

REPORT INFORMATION
  Report Type: Report from Study
  Country: CA (occurrence: CA)
  Receive Date: 20250226
  Receipt Date: 20250508
  Transmission Date: 20250717
  Serious: Yes (Other)
  Sender: TAKEDA
  Company Number: CA-TAKEDA-2017TUS011138

PATIENT
  Sex: Female

DRUGS (9)
  1. VEDOLIZUMAB [Suspect]
     Active Substance: VEDOLIZUMAB
     Indication: Crohn^s disease
  2. VEDOLIZUMAB [Suspect]
     Active Substance: VEDOLIZUMAB
  3. VEDOLIZUMAB [Suspect]
     Active Substance: VEDOLIZUMAB
  4. VEDOLIZUMAB [Suspect]
     Active Substance: VEDOLIZUMAB
  5. PREDNISONE [Concomitant]
     Active Substance: PREDNISONE
     Indication: Drug dependence
  6. Cortiment [Concomitant]
  7. IMURAN [Concomitant]
     Active Substance: AZATHIOPRINE
     Dosage: 2.5 MILLIGRAM/KILOGRAM, QD
     Dates: start: 2014
  8. CITALOPRAM [Concomitant]
     Active Substance: CITALOPRAM
  9. Calcite [Concomitant]

REACTIONS (5)
  - Peritonsillar abscess [Recovering/Resolving]
  - Deafness unilateral [Unknown]
  - Pharyngitis streptococcal [Recovered/Resolved]
  - Diarrhoea [Unknown]
  - Ear infection [Unknown]
